FAERS Safety Report 5480523-7 (Version None)
Quarter: 2007Q4

REPORT INFORMATION
  Report Type: 
  Country: None (occurrence: None)
  Receive Date: 20071009
  Receipt Date: 20070927
  Transmission Date: 20080405
  Serious: Yes (Disabling)
  Sender: FDA-Public Use
  Company Number: PHHO2007US16369

PATIENT
  Age: 31 Year
  Sex: Male
  Weight: 76.4 kg

DRUGS (2)
  1. NEORAL [Suspect]
     Indication: RENAL TRANSPLANT
     Dosage: 150 MG/DAILY
     Route: 048
     Dates: start: 20060330
  2. CERTICAN [Suspect]
     Indication: RENAL TRANSPLANT
     Dosage: 4.5 MG/DAILY
     Route: 048
     Dates: start: 20060330

REACTIONS (2)
  - ARTHRALGIA [None]
  - OSTEONECROSIS [None]
